FAERS Safety Report 8315322-1 (Version None)
Quarter: 2012Q2

REPORT INFORMATION
  Report Type: 
  Country: None (occurrence: None)
  Receive Date: 20120426
  Receipt Date: 20120417
  Transmission Date: 20120825
  Serious: Yes (Other)
  Sender: FDA-Public Use
  Company Number: GR-ELI_LILLY_AND_COMPANY-GR201203009341

PATIENT
  Age: 10 Year
  Sex: Female

DRUGS (3)
  1. HUMATROPE [Suspect]
     Indication: GROWTH HORMONE DEFICIENCY
     Dosage: 1 MG, ONCE DAILY FOR SIX DAYS PER WEEK
     Route: 058
     Dates: start: 20120302, end: 20120329
  2. DEPAKENE [Concomitant]
     Indication: EPILEPSY
     Dosage: UNK
     Route: 048
  3. T4 [Concomitant]
     Indication: HYPOTHYROIDISM
     Dosage: UNK
     Route: 048

REACTIONS (1)
  - EPILEPSY [None]
